FAERS Safety Report 25680493 (Version 1)
Quarter: 2025Q3

REPORT INFORMATION
  Report Type: Spontaneous
  Country: US (occurrence: US)
  Receive Date: 20250814
  Receipt Date: 20250814
  Transmission Date: 20251020
  Serious: Yes (Hospitalization)
  Sender: MERCK SHARP & DOHME LLC
  Company Number: US-009507513-2317232

PATIENT
  Sex: Female

DRUGS (1)
  1. BELZUTIFAN [Suspect]
     Active Substance: BELZUTIFAN
     Indication: Renal cell carcinoma
     Dosage: 80 MG ONCE DAILY
     Dates: start: 20250727

REACTIONS (4)
  - Metabolic acidosis [Unknown]
  - Condition aggravated [Unknown]
  - Ascites [Unknown]
  - Renal failure [Unknown]

NARRATIVE: CASE EVENT DATE: 20250101
